FAERS Safety Report 5914135-5 (Version None)
Quarter: 2008Q3

REPORT INFORMATION
  Report Type: 
  Country: None (occurrence: None)
  Receive Date: 20080909
  Receipt Date: 20071114
  Transmission Date: 20090109
  Serious: Yes (Disabling)
  Sender: FDA-Public Use
  Company Number: 163-20785-07091493

PATIENT
  Age: 82 Year
  Sex: Male

DRUGS (3)
  1. THALOMID [Suspect]
     Indication: MULTIPLE MYELOMA
     Dosage: 100 - 200MG, QHS, ORAL
     Route: 047
     Dates: start: 20050606, end: 20071101
  2. ARANESP [Suspect]
     Indication: MULTIPLE MYELOMA
     Dates: start: 20040701
  3. DEXAMETHASONE TAB [Concomitant]

REACTIONS (1)
  - NEUROPATHY PERIPHERAL [None]
